FAERS Safety Report 16455050 (Version 1)
Quarter: 2019Q2

REPORT INFORMATION
  Report Type: Spontaneous
  Country: US (occurrence: US)
  Receive Date: 20190620
  Receipt Date: 20190620
  Transmission Date: 20190711
  Serious: No
  Sender: FDA-Public Use
  Company Number: PHEH2019US025187

PATIENT
  Sex: Female

DRUGS (1)
  1. MAYZENT [Suspect]
     Active Substance: SIPONIMOD
     Indication: PRODUCT USED FOR UNKNOWN INDICATION
     Dosage: 2 MG, UNK
     Route: 048
     Dates: start: 20190530, end: 20190610

REACTIONS (8)
  - Dizziness [Unknown]
  - Heart rate decreased [Unknown]
  - Pain in extremity [Unknown]
  - Joint swelling [Unknown]
  - Hypertension [Unknown]
  - Limb discomfort [Unknown]
  - Peripheral swelling [Unknown]
  - Diarrhoea [Unknown]
